FAERS Safety Report 8524137-0 (Version None)
Quarter: 2012Q2

REPORT INFORMATION
  Report Type: 
  Country: None (occurrence: None)
  Receive Date: 20120406
  Receipt Date: 20111013
  Transmission Date: 20120825
  Serious: Yes (Hospitalization)
  Sender: FDA-Public Use
  Company Number: US-CYPR-2011-000073

PATIENT
  Sex: Male
  Weight: 112 kg

DRUGS (18)
  1. POTASSIUM CHLORIDE [Concomitant]
  2. CLOPIDOGREL [Suspect]
     Indication: ANTIPLATELET THERAPY
     Dosage: 75 MG QD ORAL, 75 MG QD ORAL, 75 MG QD ORAL
     Route: 048
     Dates: start: 20110209, end: 20110605
  3. CLOPIDOGREL [Suspect]
     Indication: ANTIPLATELET THERAPY
     Dosage: 75 MG QD ORAL, 75 MG QD ORAL, 75 MG QD ORAL
     Route: 048
     Dates: start: 20110610, end: 20111007
  4. CLOPIDOGREL [Suspect]
     Indication: ANTIPLATELET THERAPY
     Dosage: 75 MG QD ORAL, 75 MG QD ORAL, 75 MG QD ORAL
     Route: 048
     Dates: start: 20111013
  5. ASPIRIN [Suspect]
     Indication: CORONARY ARTERY DISEASE
     Dosage: 325 MG QD ORAL
     Route: 048
     Dates: start: 19950101
  6. FUROSEMIDE [Concomitant]
  7. LEVEMIR [Concomitant]
  8. LOPID [Concomitant]
  9. COMBIVENT [Concomitant]
  10. METFORMIN HYDROCHLORIDE [Concomitant]
  11. OMEPRAZOLE [Concomitant]
  12. NOVOLOG [Concomitant]
  13. ACTOS [Concomitant]
  14. LANOXIN [Concomitant]
  15. SIMVASTATIN [Concomitant]
  16. AMARYL [Concomitant]
  17. BYSTOLIC [Concomitant]
  18. CYPHER [Concomitant]

REACTIONS (1)
  - CHRONIC OBSTRUCTIVE PULMONARY DISEASE [None]
